FAERS Safety Report 9140274 (Version 2)
Quarter: 2013Q2

REPORT INFORMATION
  Report Type: Spontaneous
  Country: US (occurrence: US)
  Receive Date: 20130305
  Receipt Date: 20130412
  Transmission Date: 20140414
  Serious: Yes (Hospitalization)
  Sender: FDA-Public Use
  Company Number: US-MILLENNIUM PHARMACEUTICALS, INC.-2013-01580

PATIENT
  Age: 30 Year
  Sex: Female

DRUGS (1)
  1. VELCADE [Suspect]
     Indication: IDIOPATHIC THROMBOCYTOPENIC PURPURA
     Dosage: 2.6 MG, UNK
     Route: 058
     Dates: start: 20130121, end: 20130131

REACTIONS (5)
  - Haemorrhage intracranial [Recovered/Resolved with Sequelae]
  - Epistaxis [Recovered/Resolved with Sequelae]
  - Full blood count decreased [Recovered/Resolved with Sequelae]
  - Neuropathy peripheral [Unknown]
  - Off label use [Unknown]
